FAERS Safety Report 7028140-1 (Version None)
Quarter: 2010Q4

REPORT INFORMATION
  Report Type: 
  Country: None (occurrence: None)
  Receive Date: 20101005
  Receipt Date: 20100925
  Transmission Date: 20110411
  Serious: No
  Sender: FDA-Public Use
  Company Number: KR-JNJFOC-20100908682

PATIENT
  Age: 44 Year
  Sex: Male

DRUGS (3)
  1. DURAGESIC-100 [Suspect]
     Indication: PAIN MANAGEMENT
     Route: 062
  2. DURAGESIC-100 [Suspect]
     Dosage: HALF A PATCH OF 12.5UG/HR
     Route: 062
  3. MOTILIUM M TABLET [Concomitant]
     Indication: ANTIEMETIC SUPPORTIVE CARE
     Route: 048

REACTIONS (7)
  - ASTHENIA [None]
  - DRUG ADMINISTRATION ERROR [None]
  - DYSCHEZIA [None]
  - DYSPEPSIA [None]
  - DYSURIA [None]
  - NAUSEA [None]
  - SOMNOLENCE [None]
